FAERS Safety Report 5190728-0 (Version None)
Quarter: 2006Q4

REPORT INFORMATION
  Report Type: 
  Country: None (occurrence: None)
  Receive Date: 20061222
  Receipt Date: 20061214
  Transmission Date: 20070319
  Serious: Yes (Hospitalization)
  Sender: FDA-Public Use
  Company Number: GB-ROCHE-475041

PATIENT
  Age: 45 Year
  Sex: Male
  Weight: 59 kg

DRUGS (10)
  1. CAPECITABINE [Suspect]
     Dosage: GIVEN FOR 14 DAYS FOLLOWED BY 1 WEEK REST.
     Route: 048
     Dates: start: 20050112, end: 20050123
  2. CAPECITABINE [Suspect]
     Route: 048
     Dates: start: 20050125
  3. GEMCITABINE [Suspect]
     Route: 042
     Dates: start: 20040114
  4. MOVICOL [Concomitant]
     Route: 048
     Dates: start: 20040715
  5. ORAMORPH SR [Concomitant]
     Route: 048
     Dates: start: 20040715
  6. INFUMORPH [Concomitant]
     Dosage: DRUG REPORTED AS ZOMOPH.
     Route: 048
     Dates: start: 20050106
  7. RANITIDINE [Concomitant]
     Route: 048
     Dates: start: 20041115
  8. IBUPROFEN [Concomitant]
     Route: 048
     Dates: start: 20050115
  9. CYCLIZINE [Concomitant]
     Dosage: AS NEEDED.
     Route: 048
     Dates: start: 20040715
  10. TEMAZEPAM [Concomitant]
     Route: 048
     Dates: start: 20041115

REACTIONS (1)
  - CHOLANGITIS [None]
